FAERS Safety Report 13033669 (Version 3)
Quarter: 2017Q1

REPORT INFORMATION
  Report Type: Spontaneous
  Country: JP (occurrence: JP)
  Receive Date: 20161216
  Receipt Date: 20170111
  Transmission Date: 20170428
  Serious: Yes (Other)
  Sender: FDA-Public Use
  Company Number: JP-UCBSA-2016047579

PATIENT
  Age: 15 Month
  Sex: Female

DRUGS (5)
  1. XYZAL [Suspect]
     Active Substance: LEVOCETIRIZINE DIHYDROCHLORIDE
     Dosage: 2.5 ML, ONCE DAILY (QD)
     Route: 048
     Dates: start: 20161128, end: 20161204
  2. CARBOCISTEINE [Concomitant]
     Active Substance: CARBOCYSTEINE
     Dosage: UNK
     Dates: start: 20161128
  3. XYZAL [Suspect]
     Active Substance: LEVOCETIRIZINE DIHYDROCHLORIDE
     Indication: RHINORRHOEA
     Dosage: 2.5 ML, 1D
     Route: 048
     Dates: start: 20161013, end: 2016
  4. XYZAL [Suspect]
     Active Substance: LEVOCETIRIZINE DIHYDROCHLORIDE
     Dosage: 2.5 ML, ONCE DAILY (QD)
     Route: 048
     Dates: start: 20161111, end: 20161128
  5. XYZAL [Suspect]
     Active Substance: LEVOCETIRIZINE DIHYDROCHLORIDE
     Indication: RHINITIS ALLERGIC
     Dosage: 2.5 ML, QD
     Route: 048
     Dates: start: 20160906, end: 201609

REACTIONS (3)
  - Pyrexia [Recovered/Resolved]
  - Arthropod scratch [Unknown]
  - Febrile convulsion [Recovered/Resolved]

NARRATIVE: CASE EVENT DATE: 2016
